FAERS Safety Report 8013261-7 (Version None)
Quarter: 2011Q4

REPORT INFORMATION
  Report Type: 
  Country: None (occurrence: None)
  Receive Date: 20111229
  Receipt Date: 20111229
  Transmission Date: 20120403
  Serious: No
  Sender: FDA-Public Use
  Company Number: None

PATIENT
  Sex: Male
  Weight: 68.038 kg

DRUGS (1)
  1. PANCRELIPASE [Suspect]
     Indication: PANCREATITIS CHRONIC
     Dosage: 3 TABS
     Route: 048
     Dates: start: 20111010, end: 20111223

REACTIONS (4)
  - ABDOMINAL DISTENSION [None]
  - ABDOMINAL DISCOMFORT [None]
  - DIARRHOEA [None]
  - NAUSEA [None]
